FAERS Safety Report 21335286 (Version 1)
Quarter: 2022Q3

REPORT INFORMATION
  Report Type: Report from Study
  Country: MX (occurrence: MX)
  Receive Date: 20220915
  Receipt Date: 20220915
  Transmission Date: 20221027
  Serious: Yes (Other)
  Sender: FDA-Public Use
  Company Number: MX-NOVARTISPH-NVSC2022MX207345

PATIENT
  Age: 69 Year
  Sex: Female
  Weight: 92 kg

DRUGS (2)
  1. EXFORGE HCT [Suspect]
     Active Substance: AMLODIPINE BESYLATE\HYDROCHLOROTHIAZIDE\VALSARTAN
     Indication: Blood pressure abnormal
     Dosage: 0.5 DOSAGE FORM, BID (? TABLET OF EXFORGE HCT IN THE MORNING AND ? AT NIGHT)
     Route: 048
     Dates: start: 202207
  2. EXFORGE HCT [Suspect]
     Active Substance: AMLODIPINE BESYLATE\HYDROCHLOROTHIAZIDE\VALSARTAN
     Dosage: (1/2 TABLET IN THE MORNINGS, START DATE- 20 DAYS AGO APPROXIMATELY) QD
     Route: 048

REACTIONS (6)
  - Arrhythmia [Recovering/Resolving]
  - Cardiac murmur [Unknown]
  - Cardiac valve disease [Unknown]
  - COVID-19 [Recovering/Resolving]
  - Wrong technique in product usage process [Unknown]
  - Product prescribing error [Unknown]

NARRATIVE: CASE EVENT DATE: 20220701
